FAERS Safety Report 7682076-1 (Version None)
Quarter: 2011Q3

REPORT INFORMATION
  Report Type: 
  Country: None (occurrence: None)
  Receive Date: 20110810
  Receipt Date: 20110802
  Transmission Date: 20111222
  Serious: Yes (Other)
  Sender: FDA-Public Use
  Company Number: 2011SP036189

PATIENT
  Sex: Female

DRUGS (2)
  1. PEGATRON (PEGYLATED INTERFERON ALFA-2B W/RIBAVIRIN) [Suspect]
     Indication: HEPATITIS C
  2. ZOLOFT [Concomitant]

REACTIONS (7)
  - INSOMNIA [None]
  - THROAT TIGHTNESS [None]
  - DIZZINESS [None]
  - MOUTH ULCERATION [None]
  - HEADACHE [None]
  - BLISTER [None]
  - MALAISE [None]
